FAERS Safety Report 17891986 (Version 1)
Quarter: 2020Q2

REPORT INFORMATION
  Report Type: Spontaneous
  Country: ES (occurrence: ES)
  Receive Date: 20200612
  Receipt Date: 20200612
  Transmission Date: 20200714
  Serious: Yes (Other)
  Sender: FDA-Public Use
  Company Number: ES-ELI_LILLY_AND_COMPANY-ES202006003127

PATIENT
  Age: 65 Year
  Sex: Female
  Weight: 96 kg

DRUGS (3)
  1. INSULIN GLARGINE [Suspect]
     Active Substance: INSULIN GLARGINE
     Indication: TYPE 2 DIABETES MELLITUS
     Dosage: UNK UNK, UNKNOWN
     Route: 058
  2. TRULICITY [Suspect]
     Active Substance: DULAGLUTIDE
     Indication: TYPE 2 DIABETES MELLITUS
     Dosage: UNK UNK, UNKNOWN
     Route: 058
  3. TRULICITY [Suspect]
     Active Substance: DULAGLUTIDE
     Indication: WEIGHT INCREASED

REACTIONS (11)
  - Upper limb fracture [Recovering/Resolving]
  - Pelvic fracture [Recovering/Resolving]
  - Pain [Unknown]
  - Rheumatoid arthritis [Unknown]
  - Injection site bruising [Unknown]
  - Hiatus hernia [Unknown]
  - Abdominal pain upper [Recovering/Resolving]
  - Weight increased [Unknown]
  - Fall [Recovering/Resolving]
  - Hand fracture [Recovering/Resolving]
  - CREST syndrome [Unknown]
